FAERS Safety Report 6438579-0 (Version None)
Quarter: 2009Q4

REPORT INFORMATION
  Report Type: 
  Country: None (occurrence: None)
  Receive Date: 20091110
  Receipt Date: 20091027
  Transmission Date: 20100525
  Serious: Yes (Other)
  Sender: FDA-Public Use
  Company Number: 1000009063

PATIENT
  Age: 27 Year
  Sex: Female
  Weight: 57 kg

DRUGS (9)
  1. ESCITALOPRAM [Suspect]
     Indication: DEPRESSION
     Dosage: 10 MG (10 MG, 1 IN 1 D), ORAL, 20 MG (10 MG, 2 IN 1 D), ORAL
     Route: 048
     Dates: start: 20080429, end: 20080512
  2. ESCITALOPRAM [Suspect]
     Indication: DEPRESSION
     Dosage: 10 MG (10 MG, 1 IN 1 D), ORAL, 20 MG (10 MG, 2 IN 1 D), ORAL
     Route: 048
     Dates: start: 20080513
  3. SEROQUEL [Suspect]
     Indication: DELUSION
     Dosage: 600 MG (600 MG, 1 IN 1 D), ORAL, 400 MG (400 MG, 1 IN 1 D), ORAL
     Route: 048
     Dates: start: 20080506, end: 20080601
  4. SEROQUEL [Suspect]
     Indication: DELUSION
     Dosage: 600 MG (600 MG, 1 IN 1 D), ORAL, 400 MG (400 MG, 1 IN 1 D), ORAL
     Route: 048
     Dates: start: 20080602, end: 20080612
  5. SEROQUEL [Suspect]
     Indication: DELUSION
     Dosage: 400 MG (400 MG, 1 IN 1 D), ORAL
     Route: 048
     Dates: start: 20081101, end: 20090630
  6. SEROQUEL [Suspect]
     Indication: DELUSION
     Dosage: 200-300 MG (1 IN 1 D), ORAL
     Route: 048
     Dates: start: 20080429, end: 20080505
  7. ZYPREXA [Suspect]
     Indication: DELUSION
     Dosage: 10-15 MG (1 IN 1 D), ORAL
     Route: 048
     Dates: start: 20080612, end: 20080713
  8. ZYPREXA [Suspect]
     Indication: DELUSION
     Dosage: 15 MG (15 MG, 1 IN 1 D), ORAL
     Route: 048
     Dates: start: 20080714, end: 20081115
  9. TEMESTA (TABLETS) [Concomitant]

REACTIONS (7)
  - BLOOD CHOLESTEROL INCREASED [None]
  - BLOOD TRIGLYCERIDES INCREASED [None]
  - DELUSION [None]
  - DYSLIPIDAEMIA [None]
  - HYPERTENSION [None]
  - METABOLIC SYNDROME [None]
  - WEIGHT INCREASED [None]
